FAERS Safety Report 15345318 (Version 6)
Quarter: 2018Q4

REPORT INFORMATION
  Report Type: Report from Study
  Country: US (occurrence: US)
  Receive Date: 20180903
  Receipt Date: 20181206
  Transmission Date: 20190204
  Serious: Yes (Hospitalization, Other)
  Sender: FDA-Public Use
  Company Number: US-ALEXION PHARMACEUTICALS INC.-A201811124

PATIENT
  Sex: Female
  Weight: 83.6 kg

DRUGS (3)
  1. STRENSIQ [Suspect]
     Active Substance: ASFOTASE ALFA
     Dosage: UNK
     Route: 065
  2. STRENSIQ [Suspect]
     Active Substance: ASFOTASE ALFA
     Indication: PRODUCT USED FOR UNKNOWN INDICATION
     Dosage: UNK
     Route: 065
  3. STRENSIQ [Suspect]
     Active Substance: ASFOTASE ALFA
     Dosage: UNK
     Route: 065

REACTIONS (14)
  - Adverse drug reaction [Unknown]
  - Incorrect dose administered [Recovered/Resolved]
  - Full blood count decreased [Unknown]
  - Malaise [Recovered/Resolved]
  - Limb discomfort [Unknown]
  - Weight bearing difficulty [Unknown]
  - Blood pressure decreased [Unknown]
  - Blood potassium increased [Unknown]
  - Swelling [Unknown]
  - Impaired healing [Unknown]
  - Lower limb fracture [Unknown]
  - Injection site joint pain [Unknown]
  - Weight increased [Unknown]
  - Fall [Unknown]

NARRATIVE: CASE EVENT DATE: 20180703
